FAERS Safety Report 18936944 (Version 2)
Quarter: 2021Q1

REPORT INFORMATION
  Report Type: Spontaneous
  Country: AU (occurrence: AU)
  Receive Date: 20210224
  Receipt Date: 20210304
  Transmission Date: 20210420
  Serious: Yes (Other)
  Sender: FDA-Public Use
  Company Number: AU-PFIZER INC-2021173473

PATIENT
  Age: 51 Year
  Sex: Female

DRUGS (3)
  1. PREGABALIN. [Suspect]
     Active Substance: PREGABALIN
     Indication: NEURALGIA
     Dosage: 300 MG, 2X/DAY
  2. TAPENTADOL [Suspect]
     Active Substance: TAPENTADOL
     Indication: NEURALGIA
     Dosage: 250 MG, 2X/DAY
  3. PREGABALIN. [Suspect]
     Active Substance: PREGABALIN
     Dosage: 75 MG (AS REQUIRED)
     Route: 048

REACTIONS (2)
  - Generalised onset non-motor seizure [Recovered/Resolved]
  - Encephalopathy [Recovered/Resolved]
